APPROVED DRUG PRODUCT: METHYLPHENIDATE
Active Ingredient: METHYLPHENIDATE
Strength: 10MG/9HR (1.1MG/HR)
Dosage Form/Route: FILM, EXTENDED RELEASE;TRANSDERMAL
Application: A206497 | Product #001 | TE Code: AB
Applicant: MYLAN TECHNOLOGIES INC A VIATRIS CO
Approved: Mar 14, 2022 | RLD: No | RS: No | Type: RX